FAERS Safety Report 4819410-3 (Version None)
Quarter: 2005Q4

REPORT INFORMATION
  Report Type: 
  Country: None (occurrence: None)
  Receive Date: 20051031
  Receipt Date: 20050725
  Transmission Date: 20060501
  Serious: No
  Sender: FDA-Public Use
  Company Number: 2005PV000577

PATIENT
  Age: 53 Year
  Sex: Female
  Weight: 63.9572 kg

DRUGS (8)
  1. SYMLIN [Suspect]
     Indication: DIABETES MELLITUS INSULIN-DEPENDENT
     Dosage: 60 MCG; BID; SC; 45 MCG; BID; SC; BID; SC
     Route: 058
     Dates: end: 20050723
  2. SYMLIN [Suspect]
     Indication: DIABETES MELLITUS INSULIN-DEPENDENT
     Dosage: 60 MCG; BID; SC; 45 MCG; BID; SC; BID; SC
     Route: 058
     Dates: start: 20050718
  3. SYMLIN [Suspect]
     Indication: DIABETES MELLITUS INSULIN-DEPENDENT
     Dosage: 60 MCG; BID; SC; 45 MCG; BID; SC; BID; SC
     Route: 058
     Dates: start: 20050724
  4. LEVOTHYROXINE SODIUM [Concomitant]
  5. LOTENSIN [Concomitant]
  6. VITAMINS [Concomitant]
  7. EFFEXOR XR [Concomitant]
  8. INSULIN [Concomitant]

REACTIONS (2)
  - BLOOD GLUCOSE FLUCTUATION [None]
  - NAUSEA [None]
